FAERS Safety Report 15448764 (Version 1)
Quarter: 2018Q3

REPORT INFORMATION
  Report Type: Spontaneous
  Country: US (occurrence: US)
  Receive Date: 20180929
  Receipt Date: 20180929
  Transmission Date: 20181010
  Serious: No
  Sender: FDA-Public Use
  Company Number: US-SA-2018SA270343

PATIENT
  Age: 45 Year
  Sex: Female

DRUGS (1)
  1. KEVZARA [Suspect]
     Active Substance: SARILUMAB
     Indication: RHEUMATOID ARTHRITIS
     Dosage: 200 MG
     Route: 058
     Dates: start: 201809

REACTIONS (2)
  - Injection site irritation [Recovered/Resolved]
  - Fatigue [Recovered/Resolved]
